FAERS Safety Report 7318607-0 (Version None)
Quarter: 2011Q1

REPORT INFORMATION
  Report Type: 
  Country: None (occurrence: None)
  Receive Date: 20110223
  Receipt Date: 20110223
  Transmission Date: 20110831
  Serious: No
  Sender: FDA-Public Use
  Company Number: None

PATIENT
  Age: 56 Year
  Sex: Female
  Weight: 79.3795 kg

DRUGS (2)
  1. SAVELLA [Suspect]
     Indication: FIBROMYALGIA
     Dosage: ONE A DAY
     Dates: start: 20110101, end: 20110121
  2. SAVELLA [Suspect]
     Indication: FIBROMYALGIA
     Dates: start: 20110121, end: 20110124

REACTIONS (14)
  - HYPERHIDROSIS [None]
  - ALTERED VISUAL DEPTH PERCEPTION [None]
  - MOBILITY DECREASED [None]
  - DIARRHOEA [None]
  - ABASIA [None]
  - DECREASED APPETITE [None]
  - PANIC ATTACK [None]
  - MUSCULOSKELETAL DISORDER [None]
  - PRURITUS [None]
  - VOMITING [None]
  - HYPERSOMNIA [None]
  - PALPITATIONS [None]
  - MOVEMENT DISORDER [None]
  - COORDINATION ABNORMAL [None]
